FAERS Safety Report 20328293 (Version 1)
Quarter: 2022Q1

REPORT INFORMATION
  Report Type: Spontaneous
  Country: US (occurrence: None)
  Receive Date: 20220111
  Receipt Date: 20220111
  Transmission Date: 20220423
  Serious: Yes (Life-Threatening, Other)
  Sender: FDA-Public Use
  Company Number: None

PATIENT
  Age: 31 Year
  Sex: Female
  Weight: 92.08 kg

DRUGS (1)
  1. TYSABRI [Suspect]
     Active Substance: NATALIZUMAB
     Dates: start: 20211207

REACTIONS (6)
  - Pruritus [None]
  - Cough [None]
  - Tachycardia [None]
  - Perioral dermatitis [None]
  - Wheezing [None]
  - Oxygen saturation decreased [None]

NARRATIVE: CASE EVENT DATE: 20220111
